FAERS Safety Report 7385716-X (Version None)
Quarter: 2011Q1

REPORT INFORMATION
  Report Type: 
  Country: None (occurrence: None)
  Receive Date: 20110301
  Receipt Date: 20100419
  Transmission Date: 20110831
  Serious: Yes (Other)
  Sender: FDA-Public Use
  Company Number: 2211100-US-JNJFOC-20100405101

PATIENT
  Age: 58 Year
  Sex: Female

DRUGS (5)
  1. MACRODANTIN [Suspect]
     Indication: CYSTITIS
     Dates: end: 20090901
  2. IBUPROFEN [Suspect]
     Indication: ILL-DEFINED DISORDER
     Dates: end: 20090901
  3. REBIF [Suspect]
     Indication: MULTIPLE SCLEROSIS
     Dosage: 44 UG, 3 IN 1 WEEK, SUBCUTANEOUS
     Route: 058
     Dates: start: 20080910, end: 20090901
  4. PROZAC [Concomitant]
  5. NEURONTIN [Concomitant]

REACTIONS (2)
  - CYSTITIS [None]
  - RENAL FAILURE [None]
